FAERS Safety Report 13865782 (Version 1)
Quarter: 2017Q3

REPORT INFORMATION
  Report Type: Spontaneous
  Country: CA (occurrence: CA)
  Receive Date: 20170814
  Receipt Date: 20170814
  Transmission Date: 20171127
  Serious: Yes (Other)
  Sender: FDA-Public Use
  Company Number: CA-TEVA-795529ACC

PATIENT
  Age: 51 Year
  Sex: Female

DRUGS (3)
  1. CARBOPLATIN. [Suspect]
     Active Substance: CARBOPLATIN
     Indication: OVARIAN CANCER
     Route: 042
  2. PACLITAXEL INJECTION [Concomitant]
     Active Substance: PACLITAXEL
  3. TYLENOL EXTRA STRENGTH EZ [Concomitant]
     Active Substance: ACETAMINOPHEN

REACTIONS (1)
  - Haematuria [Unknown]
